FAERS Safety Report 16041612 (Version 3)
Quarter: 2020Q2

REPORT INFORMATION
  Report Type: Spontaneous
  Country: US (occurrence: US)
  Receive Date: 20190306
  Receipt Date: 20200506
  Transmission Date: 20200713
  Serious: No
  Sender: FDA-Public Use
  Company Number: US-PFIZER INC-2019087221

PATIENT
  Age: 54 Year
  Sex: Female

DRUGS (1)
  1. LYRICA [Suspect]
     Active Substance: PREGABALIN
     Dosage: UNK

REACTIONS (4)
  - Asthma [Unknown]
  - Frustration tolerance decreased [Unknown]
  - Nerve injury [Unknown]
  - Tremor [Unknown]

NARRATIVE: CASE EVENT DATE: 20200504
